FAERS Safety Report 10615159 (Version 1)
Quarter: 2014Q4

REPORT INFORMATION
  Report Type: Spontaneous
  Country: US (occurrence: None)
  Receive Date: 20141125
  Receipt Date: 20141125
  Transmission Date: 20150529
  Serious: No
  Sender: FDA-Public Use
  Company Number: None

PATIENT
  Age: 74 Year
  Sex: Female
  Weight: 83.92 kg

DRUGS (14)
  1. ASPIRIN. [Concomitant]
     Active Substance: ASPIRIN
  2. INSULIN-LANTUS [Concomitant]
  3. SERTRUM [Concomitant]
  4. MULTIVITAMIN B12 [Concomitant]
  5. MUCINEX [Concomitant]
     Active Substance: GUAIFENESIN
  6. LORATADINEIX [Concomitant]
  7. OMEGA 3 [Concomitant]
     Active Substance: OMEGA-3 FATTY ACIDS
  8. ANORO ELLIPTA [Suspect]
     Active Substance: UMECLIDINIUM BROMIDE\VILANTEROL TRIFENATATE
     Indication: CHRONIC OBSTRUCTIVE PULMONARY DISEASE
     Dosage: 625-25 AER, 1 PUFF, 1 TIME DAILY, INHALDED
     Route: 055
     Dates: start: 20140814, end: 20141001
  9. VALSARTIN [Concomitant]
  10. L-1 HYROXINE [Concomitant]
  11. VERAPAMIL ER [Concomitant]
     Active Substance: VERAPAMIL HYDROCHLORIDE
  12. METOPROLOL [Concomitant]
     Active Substance: METOPROLOL
  13. CALCIUM [Concomitant]
     Active Substance: CALCIUM
  14. METFORMIN [Concomitant]
     Active Substance: METFORMIN HYDROCHLORIDE

REACTIONS (3)
  - Cystitis [None]
  - Bladder pain [None]
  - Pruritus [None]

NARRATIVE: CASE EVENT DATE: 20140804
